FAERS Safety Report 14847757 (Version 1)
Quarter: 2018Q2

REPORT INFORMATION
  Report Type: Spontaneous
  Country: FR (occurrence: FR)
  Receive Date: 20180504
  Receipt Date: 20180504
  Transmission Date: 20180711
  Serious: Yes (Other)
  Sender: FDA-Public Use
  Company Number: FR-PFIZER INC-2018177652

PATIENT
  Age: 43 Year
  Sex: Male
  Weight: 75 kg

DRUGS (1)
  1. NEURONTIN [Suspect]
     Active Substance: GABAPENTIN
     Indication: EPILEPSY
     Dosage: 1100 MG, 1X/DAY
     Route: 048
     Dates: start: 2000

REACTIONS (1)
  - Oligoasthenoteratozoospermia [Not Recovered/Not Resolved]

NARRATIVE: CASE EVENT DATE: 201712
